FAERS Safety Report 23199258 (Version 2)
Quarter: 2024Q1

REPORT INFORMATION
  Report Type: Spontaneous
  Country: US (occurrence: US)
  Receive Date: 20231117
  Receipt Date: 20240219
  Transmission Date: 20240409
  Serious: No
  Sender: FDA-Public Use
  Company Number: US-Stemline Therapeutics, Inc.-2023ST003997

PATIENT
  Age: 77 Year
  Sex: Female
  Weight: 52.664 kg

DRUGS (5)
  1. ORSERDU [Suspect]
     Active Substance: ELACESTRANT
     Indication: Breast cancer stage IV
     Dosage: 345 MG, TABLET, ONCE DAILY
     Route: 048
     Dates: start: 20231002
  2. CYMBALTA [Concomitant]
     Active Substance: DULOXETINE HYDROCHLORIDE
     Indication: Pain
     Dosage: 20 MG, TWICE DAILY, ORAL
     Route: 048
     Dates: start: 2019
  3. ROSUVASTATIN [Concomitant]
     Active Substance: ROSUVASTATIN
     Indication: Blood cholesterol increased
     Dosage: 5 MG, ONCE DAILY, ORAL
     Route: 048
     Dates: start: 2010
  4. TYLENOL [Concomitant]
     Active Substance: ACETAMINOPHEN
     Indication: Headache
  5. Stool softner [Concomitant]
     Indication: Constipation

REACTIONS (7)
  - Herpes zoster [Unknown]
  - Vomiting [Recovered/Resolved]
  - Headache [Recovered/Resolved]
  - Constipation [Recovering/Resolving]
  - Diarrhoea [Unknown]
  - Fatigue [Unknown]
  - Haemoglobin decreased [Unknown]

NARRATIVE: CASE EVENT DATE: 20231003
